FAERS Safety Report 7131359-2 (Version None)
Quarter: 2010Q4

REPORT INFORMATION
  Report Type: 
  Country: None (occurrence: None)
  Receive Date: 20101201
  Receipt Date: 20100212
  Transmission Date: 20110411
  Serious: No
  Sender: FDA-Public Use
  Company Number: US-TYCO HEALTHCARE/MALLINCKRODT-T201000646

PATIENT
  Sex: Female

DRUGS (7)
  1. METHYLIN [Suspect]
     Indication: ATTENTION DEFICIT/HYPERACTIVITY DISORDER
     Dosage: 1/4 TAB PRN
  2. CELEXA [Concomitant]
     Indication: DEPRESSION
     Dosage: 40 UNK, QD
     Route: 048
  3. ALPRO [Concomitant]
     Indication: ANXIETY
     Dosage: 1 MG, QID PRN
     Route: 048
  4. OXYCONTIN [Concomitant]
     Indication: PAIN
     Dosage: 40 MG, Q8 HOURS PRN
     Route: 048
  5. NEURONTIN [Concomitant]
     Indication: PAIN
     Dosage: 300 MG, QD
     Route: 048
  6. FENTANYL                           /00174602/ [Concomitant]
     Indication: PAIN
     Dosage: 1 Q 3 DAYS
     Route: 062
  7. NUCYNTA [Concomitant]
     Indication: BREAKTHROUGH PAIN
     Dosage: 75 MG, UNK

REACTIONS (2)
  - CHEST DISCOMFORT [None]
  - THINKING ABNORMAL [None]
